FAERS Safety Report 14355068 (Version 1)
Quarter: 2018Q1

REPORT INFORMATION
  Report Type: Report from Study
  Country: US (occurrence: US)
  Receive Date: 20180105
  Receipt Date: 20180105
  Transmission Date: 20180509
  Serious: Yes (Other)
  Sender: FDA-Public Use
  Company Number: US-BAYER-2018-000057

PATIENT
  Age: 61 Year
  Sex: Male

DRUGS (1)
  1. NEXAVAR [Suspect]
     Active Substance: SORAFENIB
     Indication: HEPATOMEGALY
     Dosage: 400 MG, BID
     Route: 048
     Dates: start: 20171130

REACTIONS (5)
  - Product use in unapproved indication [None]
  - Peripheral swelling [None]
  - Gait inability [None]
  - Off label use [None]
  - Paraesthesia [None]
